FAERS Safety Report 20231215 (Version 8)
Quarter: 2022Q4

REPORT INFORMATION
  Report Type: Report from Study
  Country: US (occurrence: US)
  Receive Date: 20211227
  Receipt Date: 20221130
  Transmission Date: 20230113
  Serious: Yes (Other)
  Sender: FDA-Public Use
  Company Number: US-GSKCCFUS-Case-01221759_AE-71595

PATIENT

DRUGS (1)
  1. BELANTAMAB MAFODOTIN [Suspect]
     Active Substance: BELANTAMAB MAFODOTIN
     Indication: Product used for unknown indication
     Dosage: 2.5 MG/KG, 120 MG

REACTIONS (9)
  - Punctate keratitis [Unknown]
  - Visual acuity reduced [Not Recovered/Not Resolved]
  - Keratopathy [Unknown]
  - Ocular toxicity [Unknown]
  - Vision blurred [Unknown]
  - Night blindness [Not Recovered/Not Resolved]
  - Dry eye [Not Recovered/Not Resolved]
  - Eye pain [Unknown]
  - Visual impairment [Unknown]

NARRATIVE: CASE EVENT DATE: 20211019
